FAERS Safety Report 4302271-9 (Version None)
Quarter: 2004Q1

REPORT INFORMATION
  Report Type: 
  Country: None (occurrence: None)
  Receive Date: 20040220
  Receipt Date: 20040209
  Transmission Date: 20041129
  Serious: Yes (Hospitalization)
  Sender: FDA-Public Use
  Company Number: 2004008076

PATIENT
  Age: 58 Year
  Sex: Male

DRUGS (7)
  1. ATARAX [Suspect]
     Indication: ILL-DEFINED DISORDER
     Dosage: 25 MG, ORAL
     Route: 048
     Dates: start: 20031208
  2. HEPARIN-FRACTION, CALCIUM SALT (HEPARIN-FRACTION, CALCIUM SALT) [Suspect]
     Indication: ILL-DEFINED DISORDER
     Dosage: SUBCUTANEOUS
     Route: 058
     Dates: start: 20031208
  3. FOLIC ACID [Suspect]
     Indication: ILL-DEFINED DISORDER
     Dosage: 10 MG, ORAL
     Route: 048
     Dates: start: 20031210
  4. OXAZEPAM [Suspect]
     Indication: ILL-DEFINED DISORDER
     Dosage: 10 MG, ORAL
     Route: 048
     Dates: start: 20031210
  5. AMIODARONE HCL [Suspect]
     Indication: ILL-DEFINED DISORDER
     Dosage: 400 MG, ORAL
     Route: 048
     Dates: start: 20031212, end: 20031226
  6. DIGOXIN [Concomitant]
  7. VITAMIN BI AND B6 (THIAMINE, PYRIDOXINE) [Concomitant]

REACTIONS (3)
  - PRURIGO [None]
  - PRURITUS [None]
  - RASH ERYTHEMATOUS [None]
